FAERS Safety Report 17419219 (Version 1)
Quarter: 2020Q1

REPORT INFORMATION
  Report Type: Spontaneous
  Country: DE (occurrence: DE)
  Receive Date: 20200214
  Receipt Date: 20200214
  Transmission Date: 20200409
  Serious: Yes (Life-Threatening, Hospitalization, Other)
  Sender: FDA-Public Use
  Company Number: DE-GLAXOSMITHKLINE-DE2020GSK024733

PATIENT
  Age: 38 Year
  Sex: Male
  Weight: 95 kg

DRUGS (1)
  1. CEFUROXIME SODIUM. [Suspect]
     Active Substance: CEFUROXIME SODIUM
     Indication: URETEROSCOPY
     Dosage: 1.5 G
     Route: 042
     Dates: start: 20190617, end: 20190617

REACTIONS (4)
  - Tachycardia [Unknown]
  - Anaphylactic shock [Recovered/Resolved]
  - Hypotension [Unknown]
  - Ventricular fibrillation [Recovered/Resolved]

NARRATIVE: CASE EVENT DATE: 20190617
